FAERS Safety Report 9972138 (Version 3)
Quarter: 2014Q2

REPORT INFORMATION
  Report Type: Spontaneous
  Country: IT (occurrence: None)
  Receive Date: 20140304
  Receipt Date: 20140514
  Transmission Date: 20141212
  Serious: Yes (Hospitalization)
  Sender: FDA-Public Use
  Company Number: FK201400693

PATIENT
  Age: 67 Year
  Sex: Female

DRUGS (14)
  1. OXALIPLATIN [Suspect]
     Indication: PRODUCT USED FOR UNKNOWN INDICATION
     Dosage: CYCLICAL,  ?(NOT OTHERWISE SPECIFIED)
     Route: 042
     Dates: start: 20131203, end: 20140122
  2. OXALIPLATIN [Suspect]
     Indication: RECTAL CANCER
     Dosage: CYCLICAL,  ?(NOT OTHERWISE SPECIFIED)
     Route: 042
     Dates: start: 20131203, end: 20140122
  3. RETACRIT (EPOETINZETA) [Concomitant]
  4. CARDIOASPIRIN (ACETYLSALICYLIC ACID) [Concomitant]
  5. DUROGESIC (FENTANYL) [Concomitant]
  6. ANTRA (OMEPRAZOLE) [Concomitant]
  7. CARDICOR (BISOPROLOL FUMARATE) [Concomitant]
  8. NITRODERM TTS (GLYCERYL TRINITRATE) [Concomitant]
  9. LAEVOLAC (LACTULOSE) [Concomitant]
  10. SOLDESAM (DEXAMETHASONE SODIUM PHOSPHATE) [Concomitant]
  11. ZIRTEC (CETIRIZINE HYDROCHLORIDE) [Concomitant]
  12. FERLIXIT (FERRIC SODIUM GLUCONATE COMPLEX) [Concomitant]
  13. ACICLOVIR (ACICLOVIR) [Concomitant]
  14. ALBUMIN (ALBUMIN HUMAN) [Concomitant]

REACTIONS (7)
  - Chest discomfort [None]
  - Respiratory failure [None]
  - Vomiting [None]
  - Hyperhidrosis [None]
  - Oropharyngeal discomfort [None]
  - Throat irritation [None]
  - Cardiac fibrillation [None]
